FAERS Safety Report 10034691 (Version 1)
Quarter: 2014Q1

REPORT INFORMATION
  Report Type: Spontaneous
  Country: US (occurrence: None)
  Receive Date: 20140306
  Receipt Date: 20140306
  Transmission Date: 20141002
  Serious: Yes (Other)
  Sender: FDA-Public Use
  Company Number: 163-21880-12113698

PATIENT
  Age: 75 Year
  Sex: Male
  Weight: 92.53 kg

DRUGS (10)
  1. REVLIMID (LENALIDOMIDE) (25 MILLIGRAM, CAPSULES) [Suspect]
     Indication: PLASMA CELL MYELOMA
     Dosage: 25 MG, 21 IN 21 D, PO
     Route: 048
     Dates: start: 20120802, end: 20121025
  2. ASPIRIN BUFFERED (ACETYLSALICYLIC ACID) [Concomitant]
  3. BACTRIM (BACTRIM) [Concomitant]
  4. CLEOCIN (CLINDAMYCIN HYDROCHLORIDE) [Concomitant]
  5. CLONAZEPAM (CLONAZEPAM) [Concomitant]
  6. HYDROCHLOROTHIAZIDE (HYDROCHLOROTHIAZIDE) [Concomitant]
  7. LIPITOR (ATORVASTATIN) [Concomitant]
  8. OMEPRAZOLE (OMEPRAZOLE) [Concomitant]
  9. POTASSIUM (POTASSIUM) [Concomitant]
  10. ZOMETA (ZOLEDRONIC ACID) [Concomitant]

REACTIONS (1)
  - Cellulitis [None]
